FAERS Safety Report 17563056 (Version 14)
Quarter: 2021Q3

REPORT INFORMATION
  Report Type: Spontaneous
  Country: US (occurrence: US)
  Receive Date: 20200319
  Receipt Date: 20210830
  Transmission Date: 20211014
  Serious: Yes (Hospitalization, Other)
  Sender: FDA-Public Use
  Company Number: US-PFIZER INC-2020118780

PATIENT
  Age: 75 Year
  Sex: Female
  Weight: 99.34 kg

DRUGS (9)
  1. PREMARIN [Suspect]
     Active Substance: ESTROGENS, CONJUGATED
     Indication: ATROPHIC VULVOVAGINITIS
     Dosage: 1.5 MARK ON THAT STICK EVERY THIRD DAY
  2. PREMARIN [Suspect]
     Active Substance: ESTROGENS, CONJUGATED
     Indication: BURNING SENSATION
     Dosage: UNK, ALTERNATE DAY (APPLIES CREAM EVERY OTHER DAY)
     Route: 067
  3. PREMARIN [Suspect]
     Active Substance: ESTROGENS, CONJUGATED
     Dosage: 0.5 SLASH ON THE APPLICATOR EVERY 2 DAYS INSERTED VAGINALLY
     Route: 067
  4. PREMARIN [Suspect]
     Active Substance: ESTROGENS, CONJUGATED
     Dosage: UNK
  5. PREMARIN [Suspect]
     Active Substance: ESTROGENS, CONJUGATED
     Indication: ALOPECIA
     Dosage: 0.5 G, ALTERNATE DAY
  6. ATENOLOL. [Concomitant]
     Active Substance: ATENOLOL
     Dosage: 25 MG
  7. LEVOTHYROXINE. [Concomitant]
     Active Substance: LEVOTHYROXINE
     Indication: THYROID DISORDER
     Dosage: UNK
  8. ARMOUR THYROID [Concomitant]
     Active Substance: THYROID, PORCINE
     Indication: THYROID DISORDER
     Dosage: UNK
  9. PREMARIN [Suspect]
     Active Substance: ESTROGENS, CONJUGATED
     Indication: GENITAL BURNING SENSATION
     Dosage: 1 MG, ALTERNATE DAY(EVERY OTHER DAY)
     Route: 067

REACTIONS (28)
  - Atrophic vulvovaginitis [Unknown]
  - Spinal pain [Unknown]
  - Illness [Unknown]
  - Ovarian disorder [Unknown]
  - Cerebrovascular accident [Recovered/Resolved]
  - Fluid retention [Unknown]
  - Bladder prolapse [Unknown]
  - Klebsiella infection [Recovering/Resolving]
  - Hypothalamo-pituitary disorder [Unknown]
  - Depressed mood [Unknown]
  - Fibromyalgia [Unknown]
  - Asthenia [Unknown]
  - Crying [Unknown]
  - Immunodeficiency [Unknown]
  - Vulvovaginal dryness [Unknown]
  - Hyperhidrosis [Unknown]
  - Palpitations [Unknown]
  - Urinary tract infection [Not Recovered/Not Resolved]
  - Hot flush [Unknown]
  - Insomnia [Unknown]
  - Thermal burn [Unknown]
  - Intentional product misuse [Unknown]
  - Off label use [Unknown]
  - Speech disorder [Unknown]
  - Vulvovaginal pain [Unknown]
  - Headache [Unknown]
  - Red blood cell sedimentation rate increased [Unknown]
  - Emotional disorder [Unknown]

NARRATIVE: CASE EVENT DATE: 202105
